FAERS Safety Report 16658915 (Version 2)
Quarter: 2019Q3

REPORT INFORMATION
  Report Type: Spontaneous
  Country: US (occurrence: US)
  Receive Date: 20190801
  Receipt Date: 20190807
  Transmission Date: 20191004
  Serious: Yes (Hospitalization)
  Sender: FDA-Public Use
  Company Number: US-BIOGEN-2019BI00767500

PATIENT
  Sex: Female

DRUGS (1)
  1. TYSABRI [Suspect]
     Active Substance: NATALIZUMAB
     Indication: MULTIPLE SCLEROSIS
     Dosage: INFUSED FOR OVER 1 HOUR
     Route: 042
     Dates: start: 20160812

REACTIONS (5)
  - Viral infection [Recovered/Resolved]
  - Inappropriate schedule of product administration [Unknown]
  - Herpes zoster [Recovered/Resolved]
  - Migraine [Not Recovered/Not Resolved]
  - Meningitis [Recovered/Resolved]
